FAERS Safety Report 11677926 (Version 2)
Quarter: 2015Q4

REPORT INFORMATION
  Report Type: Spontaneous
  Country: US (occurrence: US)
  Receive Date: 20151027
  Receipt Date: 20151104
  Transmission Date: 20160304
  Serious: No
  Sender: FDA-Public Use
  Company Number: US-ELI_LILLY_AND_COMPANY-US201003003802

PATIENT
  Age: 84 Year
  Sex: Female

DRUGS (5)
  1. FORTEO [Suspect]
     Active Substance: TERIPARATIDE
     Dosage: 20 UG, DAILY (1/D)
     Dates: start: 20100331
  2. FORTEO [Suspect]
     Active Substance: TERIPARATIDE
     Indication: OSTEOPOROSIS
     Dosage: 20 UG, DAILY (1/D)
     Dates: start: 20090810, end: 20100330
  3. FORTEO [Suspect]
     Active Substance: TERIPARATIDE
     Dosage: 20 UG, DAILY (1/D)
  4. FORTEO [Suspect]
     Active Substance: TERIPARATIDE
     Dosage: 20 UG, QD
  5. FORTEO [Suspect]
     Active Substance: TERIPARATIDE
     Dosage: 20 UG, DAILY (1/D)

REACTIONS (22)
  - Fall [Recovered/Resolved]
  - Dry skin [Unknown]
  - Aphonia [Recovered/Resolved]
  - Back disorder [Unknown]
  - Neck pain [Unknown]
  - Asthenia [Recovering/Resolving]
  - Fear [Unknown]
  - Malaise [Recovering/Resolving]
  - Communication disorder [Recovering/Resolving]
  - Headache [Unknown]
  - Spinal compression fracture [Unknown]
  - Musculoskeletal pain [Not Recovered/Not Resolved]
  - Nasopharyngitis [Recovering/Resolving]
  - Erythema [Not Recovered/Not Resolved]
  - Epistaxis [Recovering/Resolving]
  - Rotator cuff syndrome [Unknown]
  - Mobility decreased [Unknown]
  - Feeling hot [Not Recovered/Not Resolved]
  - Contusion [Not Recovered/Not Resolved]
  - Rhinorrhoea [Recovering/Resolving]
  - Cough [Not Recovered/Not Resolved]
  - Burning sensation [Unknown]

NARRATIVE: CASE EVENT DATE: 2010
